FAERS Safety Report 5903344-7 (Version None)
Quarter: 2008Q3

REPORT INFORMATION
  Report Type: 
  Country: None (occurrence: None)
  Receive Date: 20080926
  Receipt Date: 20080910
  Transmission Date: 20090109
  Serious: Yes (Hospitalization)
  Sender: FDA-Public Use
  Company Number: DSA_32452_2008

PATIENT
  Age: 67 Year
  Sex: Female

DRUGS (11)
  1. VASOTEC [Suspect]
     Indication: DRUG USE FOR UNKNOWN INDICATION
     Dosage: (10 MG AT BEDTIME)
  2. ROFECOXIB [Suspect]
     Indication: ARTHRITIS
     Dosage: (25 MG QD)
     Dates: start: 20030816
  3. VERAPAMIL HCL [Suspect]
     Indication: HYPERTENSION
     Dosage: (240 MG QD)
  4. NICOTINE [Suspect]
     Indication: DRUG USE FOR UNKNOWN INDICATION
     Dosage: (DF TRANSDERMAL)
     Route: 062
  5. NEXIUM [Concomitant]
  6. AMBIEN [Concomitant]
  7. GLUCOVANCE [Concomitant]
  8. LOTREL [Concomitant]
  9. ZOCOR [Concomitant]
  10. PLAVIX [Concomitant]
  11. ASPIRIN [Concomitant]

REACTIONS (4)
  - HYPERTENSION [None]
  - HYPOTENSION [None]
  - MALAISE [None]
  - TREATMENT NONCOMPLIANCE [None]
